FAERS Safety Report 9408122 (Version 2)
Quarter: 2013Q3

REPORT INFORMATION
  Report Type: Report from Study
  Country: US (occurrence: US)
  Receive Date: 20130718
  Receipt Date: 20130822
  Transmission Date: 20140515
  Serious: Yes (Hospitalization)
  Sender: FDA-Public Use
  Company Number: US-ALEXION-A201301613

PATIENT
  Age: 24 Year
  Sex: Female

DRUGS (1)
  1. ECULIZUMAB [Suspect]
     Dosage: UNK
     Route: 042

REACTIONS (1)
  - Gastroenteritis [Recovered/Resolved]
